FAERS Safety Report 6442336-9 (Version None)
Quarter: 2009Q4

REPORT INFORMATION
  Report Type: 
  Country: None (occurrence: None)
  Receive Date: 20091112
  Receipt Date: 20091030
  Transmission Date: 20100525
  Serious: Yes (Hospitalization)
  Sender: FDA-Public Use
  Company Number: 8054000

PATIENT
  Age: 62 Year
  Sex: Female
  Weight: 60.1 kg

DRUGS (5)
  1. CERTOLIZUMAB PEGOL [Suspect]
     Indication: RHEUMATOID ARTHRITIS
     Dosage: 400 MG 1/2W SC
     Route: 058
     Dates: start: 20051019, end: 20080219
  2. CERTOLIZUMAB PEGOL [Suspect]
     Indication: RHEUMATOID ARTHRITIS
     Dosage: 200 MG 1/2W SC
     Route: 058
     Dates: start: 20080220
  3. METHOTREXATE [Concomitant]
  4. FOLIC ACID [Concomitant]
  5. NIMESIL [Concomitant]

REACTIONS (9)
  - CHILLS [None]
  - HYPERHIDROSIS [None]
  - INFLUENZA [None]
  - LUNG INFILTRATION [None]
  - MENOPAUSE [None]
  - NASOPHARYNGITIS [None]
  - PLEURAL EFFUSION [None]
  - PRODUCTIVE COUGH [None]
  - PYREXIA [None]
